FAERS Safety Report 7345093-7 (Version None)
Quarter: 2011Q1

REPORT INFORMATION
  Report Type: 
  Country: None (occurrence: None)
  Receive Date: 20110310
  Receipt Date: 20110304
  Transmission Date: 20110831
  Serious: Yes (Death)
  Sender: FDA-Public Use
  Company Number: US-CELGENEUS-163-21880-11030577

PATIENT
  Sex: Male
  Weight: 70.052 kg

DRUGS (16)
  1. AZITHROMYCIN [Concomitant]
     Dosage: 250 MILLIGRAM
     Route: 048
     Dates: start: 20110208
  2. ONDANSETRON [Concomitant]
     Dosage: 8 MILLIGRAM
     Route: 048
     Dates: start: 20110215
  3. ARISTOCORT R [Concomitant]
     Route: 061
     Dates: start: 20100215
  4. DEXAMETHASONE [Concomitant]
     Dosage: 4 MILLIGRAM
     Route: 048
     Dates: start: 20110215
  5. MORPHINE [Concomitant]
     Dosage: 20MG/ML
     Route: 048
     Dates: start: 20110215
  6. OXYGEN [Concomitant]
     Indication: NAUSEA
     Route: 055
     Dates: start: 20110103
  7. REVLIMID [Suspect]
     Dosage: 10 MILLIGRAM
     Route: 048
     Dates: start: 20100330, end: 20100528
  8. FENTANYL [Concomitant]
     Dosage: 12 MICROGRAM
     Route: 062
     Dates: start: 20110215
  9. HYDROCODONE-ACETAMINOPHEN [Concomitant]
     Dosage: 5/500
     Route: 048
  10. LEVOTHYROXINE [Concomitant]
     Dosage: 150 MICROGRAM
     Route: 048
     Dates: start: 20090616
  11. ALBUTEROL SULFATE [Concomitant]
     Dosage: 2
     Route: 055
     Dates: start: 20091123
  12. TIOTROPIUM BROMIDE [Concomitant]
     Dosage: 1
     Route: 055
     Dates: start: 20091207
  13. FLOVENT HFA [Concomitant]
     Dosage: 110 MICROGRAM
     Route: 055
     Dates: start: 20090915
  14. LORAZEPAM [Concomitant]
     Indication: NAUSEA
     Dosage: 0.5-1MG
     Route: 048
     Dates: start: 20100511
  15. LORAZEPAM [Concomitant]
     Dosage: 2MG/1ML
     Route: 048
     Dates: start: 20110221
  16. OXYGEN [Concomitant]
     Dosage: 2MG/1ML
     Route: 048
     Dates: start: 20110221

REACTIONS (1)
  - DEATH [None]
